FAERS Safety Report 5775753-0 (Version None)
Quarter: 2008Q2

REPORT INFORMATION
  Report Type: 
  Country: None (occurrence: None)
  Receive Date: 20080617
  Receipt Date: 20080610
  Transmission Date: 20081010
  Serious: Yes (Hospitalization)
  Sender: FDA-Public Use
  Company Number: US-BOEHRINGER INGELHEIM GMBH, GERMANY-2008-BP-09061RO

PATIENT
  Age: 16 Month
  Sex: Male

DRUGS (5)
  1. DEXAMETHASONE TAB [Suspect]
     Indication: LYMPHOHISTIOCYTOSIS
  2. CYCLOSPORINE [Suspect]
     Indication: LYMPHOHISTIOCYTOSIS
  3. ETOPOSIDE [Suspect]
     Indication: LYMPHOHISTIOCYTOSIS
  4. AMPHOTERICIN B [Concomitant]
     Indication: ZYGOMYCOSIS
     Route: 042
  5. AMPHOTERICIN B [Concomitant]
     Route: 042

REACTIONS (1)
  - ZYGOMYCOSIS [None]
